FAERS Safety Report 13216598 (Version 4)
Quarter: 2019Q3

REPORT INFORMATION
  Report Type: Spontaneous
  Country: CA (occurrence: CA)
  Receive Date: 20170210
  Receipt Date: 20190910
  Transmission Date: 20191004
  Serious: Yes (Other)
  Sender: FDA-Public Use
  Company Number: CA-ROCHE-1889952

PATIENT
  Sex: Female

DRUGS (27)
  1. RITUXAN [Suspect]
     Active Substance: RITUXIMAB
     Indication: RHEUMATOID ARTHRITIS
     Dosage: THERAPY DURATION: 365.0
     Route: 042
     Dates: start: 2009, end: 2010
  2. ACTEMRA [Suspect]
     Active Substance: TOCILIZUMAB
     Indication: RHEUMATOID ARTHRITIS
     Route: 065
  3. FOLIC ACID. [Suspect]
     Active Substance: FOLIC ACID
     Indication: RHEUMATOID ARTHRITIS
     Route: 065
  4. FOSAMAX [Suspect]
     Active Substance: ALENDRONATE SODIUM
     Indication: RHEUMATOID ARTHRITIS
     Route: 048
  5. HYDROXYCHLOROQUINE [Suspect]
     Active Substance: HYDROXYCHLOROQUINE
     Indication: RHEUMATOID ARTHRITIS
     Route: 065
  6. ORENCIA [Suspect]
     Active Substance: ABATACEPT
     Route: 058
  7. SULFASALAZINE. [Suspect]
     Active Substance: SULFASALAZINE
     Dosage: THERAPY DURATION: 365.0
     Route: 048
  8. CORTISONE [Suspect]
     Active Substance: CORTISONE
     Indication: RHEUMATOID ARTHRITIS
     Route: 048
  9. PREDNISONE. [Suspect]
     Active Substance: PREDNISONE
     Indication: RHEUMATOID ARTHRITIS
     Route: 065
  10. SULFASALAZINE. [Suspect]
     Active Substance: SULFASALAZINE
     Indication: RHEUMATOID ARTHRITIS
     Route: 065
     Dates: start: 2006, end: 2007
  11. PHTHALYLSULFATHIAZOLE [Suspect]
     Active Substance: PHTHALYLSULFATHIAZOLE
     Indication: PRODUCT USED FOR UNKNOWN INDICATION
     Route: 065
  12. CIMZIA [Suspect]
     Active Substance: CERTOLIZUMAB PEGOL
     Indication: RHEUMATOID ARTHRITIS
     Dosage: SOLUTION
     Route: 058
  13. SIMPONI [Suspect]
     Active Substance: GOLIMUMAB
     Indication: RHEUMATOID ARTHRITIS
     Dosage: SOLUTION
     Route: 058
  14. SULFATHALIDINE [Suspect]
     Active Substance: PHTHALYLSULFATHIAZOLE
     Indication: PRODUCT USED FOR UNKNOWN INDICATION
     Route: 065
  15. XELJANZ [Concomitant]
     Active Substance: TOFACITINIB CITRATE
  16. ENBREL [Suspect]
     Active Substance: ETANERCEPT
     Indication: RHEUMATOID ARTHRITIS
     Route: 058
  17. HUMIRA [Suspect]
     Active Substance: ADALIMUMAB
     Indication: RHEUMATOID ARTHRITIS
     Dosage: SOLUTION
     Route: 058
  18. METHOTREXATE SODIUM. [Suspect]
     Active Substance: METHOTREXATE SODIUM
     Indication: RHEUMATOID ARTHRITIS
     Dosage: INJECTION IM IV IAR INT IVR 25MG/ML; SOLUTION INTRA ARTERIAL
     Route: 013
  19. ORENCIA [Suspect]
     Active Substance: ABATACEPT
     Indication: RHEUMATOID ARTHRITIS
     Dosage: POWDER FOR SOLUTION INTRAVENOUS
     Route: 042
     Dates: start: 201005, end: 201103
  20. REMICADE [Suspect]
     Active Substance: INFLIXIMAB
     Indication: RHEUMATOID ARTHRITIS
     Dosage: POWDER FOR SOLUTION
     Route: 042
  21. HYDROXYCHLOROQUINE SULFATE. [Suspect]
     Active Substance: HYDROXYCHLOROQUINE SULFATE
     Indication: RHEUMATOID ARTHRITIS
     Route: 065
  22. DESOXIMETASONE. [Suspect]
     Active Substance: DESOXIMETASONE
     Indication: RHEUMATOID ARTHRITIS
     Route: 048
  23. ORENCIA [Suspect]
     Active Substance: ABATACEPT
     Dosage: THERAPY DURATION- 11.0 MONTH(S)
     Route: 042
  24. REACTINE [CETIRIZINE HYDROCHLORIDE] [Suspect]
     Active Substance: CETIRIZINE HYDROCHLORIDE
     Indication: RHEUMATOID ARTHRITIS
     Route: 065
  25. TOFACITINIB CITRATE [Concomitant]
     Active Substance: TOFACITINIB CITRATE
     Indication: PRODUCT USED FOR UNKNOWN INDICATION
     Route: 065
  26. ARAVA [Suspect]
     Active Substance: LEFLUNOMIDE
     Indication: RHEUMATOID ARTHRITIS
     Route: 048
  27. PLAQUENIL [Suspect]
     Active Substance: HYDROXYCHLOROQUINE SULFATE
     Indication: RHEUMATOID ARTHRITIS
     Route: 065
     Dates: start: 2006

REACTIONS (19)
  - Pain [Recovered/Resolved]
  - Maternal exposure during pregnancy [Unknown]
  - Arthropathy [Not Recovered/Not Resolved]
  - Treatment failure [Unknown]
  - Pemphigus [Recovered/Resolved]
  - Systemic lupus erythematosus [Recovered/Resolved]
  - Swelling [Not Recovered/Not Resolved]
  - Drug ineffective [Unknown]
  - Rash [Unknown]
  - Wound [Not Recovered/Not Resolved]
  - Drug intolerance [Not Recovered/Not Resolved]
  - Alopecia [Recovered/Resolved]
  - Infusion related reaction [Not Recovered/Not Resolved]
  - Glossodynia [Recovered/Resolved]
  - Rheumatoid arthritis [Recovered/Resolved]
  - Abdominal discomfort [Recovered/Resolved]
  - Discomfort [Not Recovered/Not Resolved]
  - Fatigue [Not Recovered/Not Resolved]
  - Hand deformity [Not Recovered/Not Resolved]
